FAERS Safety Report 6233999-1 (Version None)
Quarter: 2009Q2

REPORT INFORMATION
  Report Type: 
  Country: None (occurrence: None)
  Receive Date: 20090612
  Receipt Date: 20090530
  Transmission Date: 20091009
  Serious: Yes (Hospitalization, Disabling)
  Sender: FDA-Public Use
  Company Number: KR-JNJFOC-20090600747

PATIENT
  Age: 72 Year
  Sex: Male
  Weight: 60 kg

DRUGS (23)
  1. DECITABINE (DECITABINE) LYOPHILIZED POWDER [Suspect]
     Indication: MYELODYSPLASTIC SYNDROME
     Dosage: SEE IMAGE
     Route: 042
     Dates: start: 20090313, end: 20090317
  2. DECITABINE (DECITABINE) LYOPHILIZED POWDER [Suspect]
     Indication: MYELODYSPLASTIC SYNDROME
     Dosage: SEE IMAGE
     Route: 042
     Dates: start: 20090410, end: 20090414
  3. DECITABINE (DECITABINE) LYOPHILIZED POWDER [Suspect]
     Indication: MYELODYSPLASTIC SYNDROME
     Dosage: SEE IMAGE
     Route: 042
     Dates: start: 20090514, end: 20090518
  4. HARNAL (TAMSULOSIN HYDROCHLORIDE) UNSPECIFIED [Concomitant]
  5. MEROPENEM (MEROPENEM) UNSPECIFIED [Concomitant]
  6. TEICOPLANIN (TEICOPLANIN) UNSPECIFIED [Concomitant]
  7. METFORMIN HYDROCHLORIDE (METFORMIN HYDROCHLORIDE) UNSPECIFIED [Concomitant]
  8. ASPIRIN [Concomitant]
  9. NORVASC (AMLODIPINE BESILATE) UNSPECIFIED [Concomitant]
  10. AMARYL (GLIMEPIRIDE) UNSPECIFIED [Concomitant]
  11. ATACAND (CANDESARTAN CILEXTIL) UNSPECIFIED [Concomitant]
  12. FOLIC ACID [Concomitant]
  13. VITAMIN C (ASCORBIC ACID) TABLET [Concomitant]
  14. VITAMIN B (VITAMIN B NOS) UNSPECIFIED [Concomitant]
  15. ATIVAN (LORAZEPAM) UNSPECIFIED [Concomitant]
  16. TRAMADOL (TRAMADOL) UNSPECIFIED [Concomitant]
  17. DUPHALAC (LACTULOSE) UNSPECIFIED [Concomitant]
  18. SINGULAIR (MONTELUKAST) UNSPECIFIED [Concomitant]
  19. THEOPHILLINE (THEOPHYLLINE) UNSPECIFIED [Concomitant]
  20. SERETIDE (SERETIDE /01420901/) UNSPECIFIED [Concomitant]
  21. CALCIUM POLYCARBOPHIL (POLYCARBOPHIL CALCIUM) UNSPECIFIED [Concomitant]
  22. NEURONTIN (GABAPENTIN) UNSPECIFIED [Concomitant]
  23. HALOPERIDOL (HALOPERIDOL) UNSPECIFIED [Concomitant]

REACTIONS (1)
  - HYPOACUSIS [None]
